FAERS Safety Report 6725930-7 (Version None)
Quarter: 2010Q2

REPORT INFORMATION
  Report Type: 
  Country: None (occurrence: None)
  Receive Date: 20100514
  Receipt Date: 20100512
  Transmission Date: 20101027
  Serious: Yes (Hospitalization)
  Sender: FDA-Public Use
  Company Number: SE-SANOFI-AVENTIS-2010SA024478

PATIENT
  Sex: Female

DRUGS (7)
  1. APIDRA [Suspect]
     Indication: DIABETES MELLITUS
     Dosage: DOSE:100 INTERNATIONAL UNIT(S)/MILLILITRE
     Route: 058
     Dates: start: 20090101, end: 20091201
  2. AMLODIPINE [Concomitant]
     Route: 048
  3. ENALAPRIL MALEATE [Concomitant]
     Route: 048
  4. LEVOTHYROXINE SODIUM [Concomitant]
     Indication: HYPERTHYROIDISM
     Route: 048
  5. NOVORAPID [Concomitant]
     Route: 058
  6. NITROMEX [Concomitant]
     Dosage: 1-2X4 PRN
     Route: 060
  7. ACETAMINOPHEN [Concomitant]
     Dosage: 1-2 TABLETS PRN
     Route: 048

REACTIONS (4)
  - ABDOMINAL PAIN [None]
  - DIARRHOEA [None]
  - NAUSEA [None]
  - VOMITING [None]
